FAERS Safety Report 5528872-8 (Version None)
Quarter: 2007Q4

REPORT INFORMATION
  Report Type: 
  Country: None (occurrence: None)
  Receive Date: 20071119
  Receipt Date: 20070807
  Transmission Date: 20080405
  Serious: No
  Sender: FDA-Public Use
  Company Number: TPA2007A01551

PATIENT
  Age: 83 Year
  Sex: Male
  Weight: 81.6475 kg

DRUGS (5)
  1. ROZEREM [Suspect]
     Indication: INSOMNIA
     Dosage: 8 MG, HS, PER ORAL ; 8 MG, HS PER ORAL
     Route: 048
     Dates: start: 20070123, end: 20070128
  2. ROZEREM [Suspect]
     Indication: INSOMNIA
     Dosage: 8 MG, HS, PER ORAL ; 8 MG, HS PER ORAL
     Route: 048
     Dates: start: 20070701, end: 20070701
  3. ATENOLOL [Concomitant]
  4. SIMVASTATIN [Concomitant]
  5. WARFARIN SODIUM [Concomitant]

REACTIONS (1)
  - DRUG INEFFECTIVE [None]
